FAERS Safety Report 9553840 (Version 1)
Quarter: 2013Q3

REPORT INFORMATION
  Report Type: Spontaneous
  Country: US (occurrence: None)
  Receive Date: 20130913
  Receipt Date: 20130913
  Transmission Date: 20140515
  Serious: Yes (Other)
  Sender: FDA-Public Use
  Company Number: 1000045445

PATIENT
  Age: 56 Year
  Sex: Female

DRUGS (1)
  1. DALIRESP [Suspect]
     Dosage: 500 MCG, 1 IN 1 D
     Route: 048

REACTIONS (1)
  - Suicidal ideation [None]
